FAERS Safety Report 14816323 (Version 1)
Quarter: 2018Q2

REPORT INFORMATION
  Report Type: Spontaneous
  Country: ES (occurrence: ES)
  Receive Date: 20180426
  Receipt Date: 20180426
  Transmission Date: 20180711
  Serious: Yes (Other)
  Sender: FDA-Public Use
  Company Number: ES-GILEAD-2018-0334181

PATIENT
  Age: 45 Year
  Sex: Male

DRUGS (3)
  1. TRUVADA [Suspect]
     Active Substance: EMTRICITABINE\TENOFOVIR DISOPROXIL FUMARATE
     Indication: HIV INFECTION
     Dosage: UNK
     Route: 065
     Dates: end: 201604
  2. ATORVASTATIN [Concomitant]
     Active Substance: ATORVASTATIN
  3. KIVEXA [Concomitant]
     Active Substance: ABACAVIR SULFATE\LAMIVUDINE

REACTIONS (5)
  - Nephrolithiasis [Unknown]
  - Blood phosphorus decreased [Unknown]
  - Hydronephrosis [Unknown]
  - Chronic kidney disease [Unknown]
  - Microalbuminuria [Unknown]
